FAERS Safety Report 7678279-2 (Version None)
Quarter: 2011Q3

REPORT INFORMATION
  Report Type: 
  Country: None (occurrence: None)
  Receive Date: 20110811
  Receipt Date: 20110801
  Transmission Date: 20111222
  Serious: Yes (Death)
  Sender: FDA-Public Use
  Company Number: US-BAXTER-2011BH024924

PATIENT
  Sex: Female

DRUGS (5)
  1. VINCRISTINE SULFATE [Suspect]
     Indication: CHEMOTHERAPY
     Route: 065
  2. BLEOMYCIN GENERIC [Suspect]
     Indication: CHEMOTHERAPY
     Route: 065
  3. CYCLOPHOSPHAMIDE [Suspect]
     Indication: CHEMOTHERAPY
     Route: 065
  4. DACARBAZINE [Suspect]
     Indication: CHEMOTHERAPY
     Route: 065
  5. DOXORUBICIN HCL [Suspect]
     Indication: CHEMOTHERAPY
     Route: 065

REACTIONS (1)
  - DISEASE COMPLICATION [None]
